FAERS Safety Report 23770621 (Version 1)
Quarter: 2024Q2

REPORT INFORMATION
  Report Type: Spontaneous
  Country: US (occurrence: US)
  Receive Date: 20240422
  Receipt Date: 20240422
  Transmission Date: 20240715
  Serious: Yes (Other)
  Sender: FDA-Public Use
  Company Number: US-MALLINCKRODT-MNK202402552

PATIENT
  Sex: Female

DRUGS (15)
  1. CORTICOTROPIN [Suspect]
     Active Substance: CORTICOTROPIN
     Indication: Sarcoidosis
     Route: 030
  2. GEMTESA [Concomitant]
     Active Substance: VIBEGRON
     Dosage: UNKNOWN
  3. ALBUTEROL SULFATE [Concomitant]
     Active Substance: ALBUTEROL SULFATE
     Dosage: UNKNOWN (SU AER 108 )
  4. FOLIC ACID [Concomitant]
     Active Substance: FOLIC ACID
     Dosage: UNKNOWN
  5. FOLIC ACID\IRON [Concomitant]
     Active Substance: FOLIC ACID\IRON
     Dosage: UNKNOWN
  6. METHOCARBAMOL [Concomitant]
     Active Substance: METHOCARBAMOL
     Dosage: UNKNOWN
  7. METOPROLOL [Concomitant]
     Active Substance: METOPROLOL
     Dosage: UNKNOWN
  8. MONTELUKAST [Concomitant]
     Active Substance: MONTELUKAST SODIUM
     Dosage: UNKNOWN
  9. NAPROXEN [Concomitant]
     Active Substance: NAPROXEN
     Dosage: UNKNOWN
  10. OMEPRAZOLE [Concomitant]
     Active Substance: OMEPRAZOLE
     Dosage: UNKNOWN
  11. ONDANSETRON [Concomitant]
     Active Substance: ONDANSETRON
     Dosage: UNKNOWN
  12. OXYBUTYNIN CHLORIDE [Concomitant]
     Active Substance: OXYBUTYNIN CHLORIDE
     Dosage: UNKNOWN
  13. PRAVASTATIN [Concomitant]
     Active Substance: PRAVASTATIN
     Dosage: UNKNOWN
  14. PREMARIN [Concomitant]
     Active Substance: ESTROGENS, CONJUGATED
     Dosage: UNKNOWN
  15. TRAZODONE HYDROCHLORIDE [Concomitant]
     Active Substance: TRAZODONE HYDROCHLORIDE
     Dosage: UNKNOWN

REACTIONS (6)
  - Sarcoidosis [Unknown]
  - Condition aggravated [Unknown]
  - Hand fracture [Unknown]
  - Peripheral swelling [Unknown]
  - Increased appetite [Unknown]
  - Insomnia [Unknown]
